FAERS Safety Report 25200846 (Version 1)
Quarter: 2025Q2

REPORT INFORMATION
  Report Type: Spontaneous
  Country: CN (occurrence: CN)
  Receive Date: 20250415
  Receipt Date: 20250415
  Transmission Date: 20250717
  Serious: Yes (Other)
  Sender: BEIGENE
  Company Number: CN-BEIGENE-BGN-2025-005714

PATIENT
  Age: 75 Year
  Weight: 62 kg

DRUGS (8)
  1. TISLELIZUMAB [Suspect]
     Active Substance: TISLELIZUMAB
     Indication: Bone cancer metastatic
     Dosage: 200 MILLIGRAM, QD
  2. TISLELIZUMAB [Suspect]
     Active Substance: TISLELIZUMAB
     Dosage: 200 MILLIGRAM, QD
     Route: 041
  3. TISLELIZUMAB [Suspect]
     Active Substance: TISLELIZUMAB
     Dosage: 200 MILLIGRAM, QD
     Route: 041
  4. TISLELIZUMAB [Suspect]
     Active Substance: TISLELIZUMAB
     Dosage: 200 MILLIGRAM, QD
  5. CATEQUENTINIB DIHYDROCHLORIDE [Suspect]
     Active Substance: CATEQUENTINIB DIHYDROCHLORIDE
     Indication: Bone cancer metastatic
     Dosage: 12 MILLIGRAM, QD
     Route: 048
  6. CATEQUENTINIB DIHYDROCHLORIDE [Suspect]
     Active Substance: CATEQUENTINIB DIHYDROCHLORIDE
     Dosage: 12 MILLIGRAM, QD
  7. PACLITAXEL [Suspect]
     Active Substance: PACLITAXEL
     Indication: Bone cancer metastatic
     Dosage: 380 MILLIGRAM, QD
     Route: 041
  8. PACLITAXEL [Suspect]
     Active Substance: PACLITAXEL
     Dosage: 380 MILLIGRAM, QD

REACTIONS (1)
  - Myelosuppression [Recovering/Resolving]
